FAERS Safety Report 10039106 (Version 1)
Quarter: 2014Q1

REPORT INFORMATION
  Report Type: Spontaneous
  Country: US (occurrence: None)
  Receive Date: 20140306
  Receipt Date: 20140306
  Transmission Date: 20141002
  Serious: Yes (Hospitalization)
  Sender: FDA-Public Use
  Company Number: 163-21880-13084113

PATIENT
  Age: 64 Year
  Sex: Female
  Weight: 59.88 kg

DRUGS (11)
  1. REVLIMID [Suspect]
     Indication: PLASMA CELL MYELOMA
     Route: 048
     Dates: start: 20130626
  2. AMLODIPINE BESYLATE (AMLODIPINE BESILATE) [Concomitant]
  3. ATENOLOL (ATENOLOL) (TABLETS) [Concomitant]
  4. LISINOPRIL (LISINOPRIL) TABLETS [Concomitant]
  5. ONDANSETRON HCL (ONDANSETRON HYDROCHLORIDE) (TABLETS) [Concomitant]
  6. GLYBURIDE (GLIBENCLAMIDE) (TABLETS) [Concomitant]
  7. ASPIRIN (ACETYLSALICYLIC ACID) (TABLETS) [Concomitant]
  8. HYDROCHLOROTHIAZIDE (HYDROCHLOROTHIAZIDE) [Concomitant]
  9. DIAZEPAM (DIAZEPAM) (TABLETS) [Concomitant]
  10. LABETALOL HCL (LABETALOL HYDROCHLORIDE) (TABLETS) [Concomitant]
  11. CLONIDINE HCL (CLONIDINE HYDROCHLORIDE) (TABLETS) [Concomitant]

REACTIONS (1)
  - Full blood count decreased [None]
